FAERS Safety Report 8321983-3 (Version None)
Quarter: 2012Q2

REPORT INFORMATION
  Report Type: 
  Country: None (occurrence: None)
  Receive Date: 20120426
  Receipt Date: 20120420
  Transmission Date: 20120825
  Serious: Yes (Hospitalization)
  Sender: FDA-Public Use
  Company Number: 2012SP009911

PATIENT
  Age: 14 Year
  Sex: Female

DRUGS (7)
  1. DESLORATADINE [Suspect]
     Indication: RASH
     Dosage: PO; PO
     Route: 048
     Dates: start: 20111226
  2. DESLORATADINE [Suspect]
     Indication: RASH
     Dosage: PO; PO
     Route: 048
     Dates: start: 20111203
  3. VALIUM [Suspect]
     Indication: EPILEPSY
     Dosage: PO
     Route: 048
     Dates: start: 20111222
  4. DEPAKENE [Suspect]
     Indication: EPILEPSY
     Dosage: PO
     Route: 048
     Dates: start: 20111226
  5. PREDNISOLONE [Concomitant]
  6. LAMICTAL [Suspect]
     Indication: EPILEPSY
     Dosage: 100 MG; BID; PO, PO
     Route: 048
     Dates: start: 20111220, end: 20111222
  7. LAMICTAL [Suspect]
     Indication: EPILEPSY
     Dosage: 100 MG; BID; PO, PO
     Route: 048
     Dates: start: 20111107, end: 20111220

REACTIONS (9)
  - PULMONARY ARTERIAL HYPERTENSION [None]
  - PULMONARY EMBOLISM [None]
  - TOXIC SKIN ERUPTION [None]
  - STAPHYLOCOCCAL SEPSIS [None]
  - DILATATION VENTRICULAR [None]
  - PRURIGO [None]
  - PYREXIA [None]
  - PSEUDOMONAS INFECTION [None]
  - DRUG RASH WITH EOSINOPHILIA AND SYSTEMIC SYMPTOMS [None]
